FAERS Safety Report 6672565-0 (Version None)
Quarter: 2010Q2

REPORT INFORMATION
  Report Type: 
  Country: None (occurrence: None)
  Receive Date: 20100408
  Receipt Date: 20100401
  Transmission Date: 20101027
  Serious: Yes (Other)
  Sender: FDA-Public Use
  Company Number: US-BRISTOL-MYERS SQUIBB COMPANY-14987192

PATIENT
  Age: 78 Year
  Sex: Male

DRUGS (3)
  1. ERBITUX [Suspect]
     Indication: TONGUE NEOPLASM MALIGNANT STAGE UNSPECIFIED
     Dosage: DOSE REDUCED TO 546MG,532MG,520MG
     Route: 042
  2. WARFARIN SODIUM [Suspect]
     Indication: ATRIAL FIBRILLATION
     Dosage: DOSE REDUCED INTO 35MG,17.5MG,14MG/WEEK
     Route: 048
     Dates: start: 20090405
  3. RADIATION THERAPY [Suspect]

REACTIONS (4)
  - FALL [None]
  - HAEMORRHAGE [None]
  - INTERNATIONAL NORMALISED RATIO FLUCTUATION [None]
  - SKIN LACERATION [None]
